FAERS Safety Report 8791136 (Version 3)
Quarter: 2013Q1

REPORT INFORMATION
  Report Type: Spontaneous
  Country: US (occurrence: None)
  Receive Date: 20120912
  Receipt Date: 20121022
  Transmission Date: 20140127
  Serious: Yes (Hospitalization, Other)
  Sender: FDA-Public Use
  Company Number: AUR-APL-2012-03850

PATIENT
  Age: 54 Year
  Sex: Female

DRUGS (11)
  1. PAROXETINE [Suspect]
     Indication: PRODUCT USED FOR UNKNOWN INDICATION
     Dosage: IN MORNING AND AFTER LUNCH
     Route: 048
  2. FRONTAL [Suspect]
     Indication: DEPRESSION
     Route: 048
     Dates: start: 20120528
  3. ALPRAZOLAM (ALPRAZOLAM) [Suspect]
     Indication: ANXIETY
     Dosage: (1 MG, 3 IN 1 D)
     Route: 048
     Dates: start: 2006
  4. RIVOTRIL (CLONAZEPAM) [Suspect]
     Indication: PRODUCT USED FOR UNKNOWN INDICATION
  5. FRONTAL XR [Suspect]
     Indication: PRODUCT USED FOR UNKNOWN INDICATION
     Dates: start: 2012
  6. DONAREN (TRAZODONE HYDROCHLORIDE) [Concomitant]
  7. AAS INFANTIL (ACETYLSALICYLIC ACID) [Concomitant]
  8. SERTRALINE (SERTRALINE) (SERTRALINE) [Concomitant]
  9. LOSARTAN (LOSARTAN) [Concomitant]
  10. POLIVITAMINE (POLIVITAMINE) [Concomitant]
  11. VASOGARD (CILOSTAZOL) [Concomitant]

REACTIONS (1)
  - Panic disorder [None]
